FAERS Safety Report 5469696-X (Version None)
Quarter: 2007Q3

REPORT INFORMATION
  Report Type: 
  Country: None (occurrence: None)
  Receive Date: 20070927
  Receipt Date: 20070919
  Transmission Date: 20080115
  Serious: Yes (Hospitalization)
  Sender: FDA-Public Use
  Company Number: JP-MERCK-0709USA03549

PATIENT
  Age: 37 Year
  Sex: Female

DRUGS (2)
  1. ALDOMET [Suspect]
     Indication: HYPERTENSION
     Route: 048
  2. AMLODIPINE BESYLATE [Concomitant]
     Indication: HYPERTENSION
     Route: 048

REACTIONS (6)
  - ABDOMINAL PAIN UPPER [None]
  - BLOOD PRESSURE INADEQUATELY CONTROLLED [None]
  - DRUG EXPOSURE DURING PREGNANCY [None]
  - HELLP SYNDROME [None]
  - OEDEMA [None]
  - PROTEINURIA [None]
